FAERS Safety Report 4431979-X (Version None)
Quarter: 2004Q3

REPORT INFORMATION
  Report Type: 
  Country: None (occurrence: None)
  Receive Date: 20040819
  Receipt Date: 20040806
  Transmission Date: 20050211
  Serious: Yes (Hospitalization)
  Sender: FDA-Public Use
  Company Number: USA-2004-0016349

PATIENT
  Age: 72 Year
  Sex: Female
  Weight: 72 kg

DRUGS (7)
  1. OXYCONTIN [Suspect]
     Indication: CANCER PAIN
     Dosage: SEE IMAGE
     Dates: end: 20040723
  2. OXYCODONE HCL [Suspect]
     Indication: PAIN
     Dosage: SEE IMAGE
     Dates: start: 20040721
  3. ATENOLOL [Concomitant]
  4. LISINOPRIL [Concomitant]
  5. OMEPRAZOLE [Concomitant]
  6. TOLAZAMIDE (TOLAZAMIDE) [Concomitant]
  7. NOVOLIN 70/30 (INSULIN HUMAN, INSULIN HUMAN INJECTION, ISOPHANE0 [Concomitant]

REACTIONS (3)
  - ARTHRALGIA [None]
  - CONFUSIONAL STATE [None]
  - MUSCLE SPASMS [None]
